FAERS Safety Report 10711208 (Version 2)
Quarter: 2015Q1

REPORT INFORMATION
  Report Type: Spontaneous
  Country: US (occurrence: US)
  Receive Date: 20150114
  Receipt Date: 20150116
  Transmission Date: 20150721
  Serious: Yes (Death)
  Sender: FDA-Public Use
  Company Number: US-BAYER-2015-004522

PATIENT
  Age: 22 Year
  Sex: Male

DRUGS (4)
  1. OXYCODONE [Suspect]
     Active Substance: OXYCODONE
  2. ALPRAZOLAM. [Suspect]
     Active Substance: ALPRAZOLAM
  3. ROMILAR [Suspect]
     Active Substance: DEXTROMETHORPHAN HYDROBROMIDE
  4. DIPHENHYDRAMINE HYDROCHLORIDE. [Suspect]
     Active Substance: DIPHENHYDRAMINE HYDROCHLORIDE

REACTIONS (2)
  - Drug abuse [Fatal]
  - Overdose [Fatal]
